FAERS Safety Report 19242810 (Version 1)
Quarter: 2021Q2

REPORT INFORMATION
  Report Type: Report from Study
  Country: JP (occurrence: JP)
  Receive Date: 20210511
  Receipt Date: 20210511
  Transmission Date: 20210717
  Serious: Yes (Death)
  Sender: FDA-Public Use
  Company Number: PHHY2014JP176824

PATIENT
  Age: 61 Year
  Sex: Female
  Weight: 53 kg

DRUGS (2)
  1. VOTRIENT [Suspect]
     Active Substance: PAZOPANIB HYDROCHLORIDE
     Indication: LEIOMYOSARCOMA
     Dosage: 800 MG, QD
     Route: 048
     Dates: start: 20130531, end: 20140110
  2. AMLODIPINE [Concomitant]
     Active Substance: AMLODIPINE BESYLATE
     Indication: HYPERTENSION
     Route: 048

REACTIONS (3)
  - Malignant neoplasm progression [Fatal]
  - Nasopharyngitis [Recovered/Resolved]
  - Leiomyosarcoma [Fatal]

NARRATIVE: CASE EVENT DATE: 20131227
